FAERS Safety Report 16341999 (Version 1)
Quarter: 2019Q2

REPORT INFORMATION
  Report Type: Spontaneous
  Country: CN (occurrence: CN)
  Receive Date: 20190522
  Receipt Date: 20190522
  Transmission Date: 20190711
  Serious: Yes (Disabling, Other)
  Sender: FDA-Public Use
  Company Number: CN-ROCHE-2316713

PATIENT
  Age: 48 Year
  Sex: Female

DRUGS (27)
  1. TARCEVA [Suspect]
     Active Substance: ERLOTINIB HYDROCHLORIDE
     Indication: LUNG ADENOCARCINOMA
     Route: 048
     Dates: start: 201303, end: 20150921
  2. DENOSUMAB [Concomitant]
     Active Substance: DENOSUMAB
     Indication: LUNG ADENOCARCINOMA
  3. OSIMERTINIB. [Concomitant]
     Active Substance: OSIMERTINIB
     Indication: LUNG ADENOCARCINOMA
     Route: 065
     Dates: start: 20151007, end: 201607
  4. NAVELBINE [Concomitant]
     Active Substance: VINORELBINE TARTRATE
     Indication: METASTASES TO BONE
  5. PACLITAXEL. [Concomitant]
     Active Substance: PACLITAXEL
     Indication: METASTASES TO BONE
  6. CETUXIMAB. [Concomitant]
     Active Substance: CETUXIMAB
     Indication: METASTASES TO BONE
  7. PACLITAXEL. [Concomitant]
     Active Substance: PACLITAXEL
     Indication: LUNG ADENOCARCINOMA
     Route: 065
     Dates: start: 201203, end: 201208
  8. OSIMERTINIB. [Concomitant]
     Active Substance: OSIMERTINIB
     Indication: METASTASES TO CENTRAL NERVOUS SYSTEM
  9. CETUXIMAB. [Concomitant]
     Active Substance: CETUXIMAB
     Indication: METASTASES TO CENTRAL NERVOUS SYSTEM
  10. DENOSUMAB [Concomitant]
     Active Substance: DENOSUMAB
     Indication: METASTASES TO CENTRAL NERVOUS SYSTEM
  11. PEMBROLIZUMAB. [Concomitant]
     Active Substance: PEMBROLIZUMAB
     Indication: METASTASES TO BONE
  12. CARBOPLATIN. [Concomitant]
     Active Substance: CARBOPLATIN
     Indication: LUNG ADENOCARCINOMA
     Route: 065
     Dates: start: 201203, end: 201208
  13. CARBOPLATIN. [Concomitant]
     Active Substance: CARBOPLATIN
     Indication: METASTASES TO BONE
  14. ZOLEDRONIC ACID [Concomitant]
     Active Substance: ZOLEDRONIC ACID
     Indication: METASTASES TO BONE
  15. CETUXIMAB. [Concomitant]
     Active Substance: CETUXIMAB
     Indication: LUNG ADENOCARCINOMA
     Route: 065
     Dates: start: 20161025
  16. NAVELBINE [Concomitant]
     Active Substance: VINORELBINE TARTRATE
     Indication: METASTASES TO CENTRAL NERVOUS SYSTEM
  17. AVASTIN [Suspect]
     Active Substance: BEVACIZUMAB
     Indication: LUNG ADENOCARCINOMA
     Route: 065
     Dates: start: 20120301
  18. AVASTIN [Suspect]
     Active Substance: BEVACIZUMAB
     Indication: METASTASES TO BONE
  19. AVASTIN [Suspect]
     Active Substance: BEVACIZUMAB
     Indication: METASTASES TO CENTRAL NERVOUS SYSTEM
  20. TARCEVA [Suspect]
     Active Substance: ERLOTINIB HYDROCHLORIDE
     Indication: METASTASES TO CENTRAL NERVOUS SYSTEM
  21. PEMBROLIZUMAB. [Concomitant]
     Active Substance: PEMBROLIZUMAB
     Indication: METASTASES TO CENTRAL NERVOUS SYSTEM
  22. TARCEVA [Suspect]
     Active Substance: ERLOTINIB HYDROCHLORIDE
     Indication: METASTASES TO BONE
  23. ZOLEDRONIC ACID [Concomitant]
     Active Substance: ZOLEDRONIC ACID
     Indication: LUNG ADENOCARCINOMA
  24. DENOSUMAB [Concomitant]
     Active Substance: DENOSUMAB
     Indication: METASTASES TO BONE
  25. OSIMERTINIB. [Concomitant]
     Active Substance: OSIMERTINIB
     Indication: METASTASES TO BONE
     Route: 048
     Dates: start: 20161025
  26. PEMBROLIZUMAB. [Concomitant]
     Active Substance: PEMBROLIZUMAB
     Indication: LUNG ADENOCARCINOMA
     Route: 065
     Dates: start: 20160824
  27. NAVELBINE [Concomitant]
     Active Substance: VINORELBINE TARTRATE
     Indication: LUNG ADENOCARCINOMA
     Route: 048
     Dates: start: 20161216

REACTIONS (8)
  - Pleural effusion [Unknown]
  - Pelvic fluid collection [Unknown]
  - Brain oedema [Unknown]
  - Monoplegia [Unknown]
  - Depressed level of consciousness [Unknown]
  - Dyspnoea [Unknown]
  - Pyrexia [Unknown]
  - Pericardial effusion [Unknown]

NARRATIVE: CASE EVENT DATE: 201701
